FAERS Safety Report 8903589 (Version 1)
Quarter: 2012Q4

REPORT INFORMATION
  Report Type: 
  Country: FR (occurrence: FR)
  Receive Date: 20121112
  Receipt Date: 20121112
  Transmission Date: 20130627
  Serious: Yes (Other)
  Sender: FDA-Public Use
  Company Number: FR-BAXTER-2012BAX022493

PATIENT
  Age: 42 Year
  Sex: Female

DRUGS (9)
  1. ENDOXAN 2000 MG, LYOPHILISAT POUR SOLUTION INJECTABLE [Suspect]
     Indication: BREAST CANCER
     Route: 042
     Dates: start: 20120816
  2. ENDOXAN 2000 MG, LYOPHILISAT POUR SOLUTION INJECTABLE [Suspect]
     Route: 042
     Dates: start: 20120906
  3. ENDOXAN 2000 MG, LYOPHILISAT POUR SOLUTION INJECTABLE [Suspect]
     Route: 042
     Dates: start: 20120927, end: 20120927
  4. EPIRUBICIN [Suspect]
     Indication: BREAST CANCER
     Route: 042
     Dates: start: 20120816
  5. EPIRUBICIN [Suspect]
     Route: 042
     Dates: start: 20120906
  6. EPIRUBICIN [Suspect]
     Route: 042
     Dates: start: 20120927, end: 20120927
  7. FLUOROURACILE [Suspect]
     Indication: BREAST CANCER
     Route: 042
     Dates: start: 20120816
  8. FLUOROURACILE [Suspect]
     Route: 042
     Dates: start: 20120906
  9. FLUOROURACILE [Suspect]
     Route: 042
     Dates: start: 20120927, end: 20120927

REACTIONS (2)
  - Exposure during pregnancy [Recovered/Resolved]
  - Premature delivery [Recovered/Resolved]
